FAERS Safety Report 20960989 (Version 3)
Quarter: 2022Q4

REPORT INFORMATION
  Report Type: Spontaneous
  Country: FR (occurrence: FR)
  Receive Date: 20220615
  Receipt Date: 20221221
  Transmission Date: 20230113
  Serious: Yes (Other)
  Sender: FDA-Public Use
  Company Number: FR-AFSSAPS-PO20221186

PATIENT
  Age: 70 Year
  Sex: Female
  Weight: 56 kg

DRUGS (9)
  1. LINEZOLID [Suspect]
     Active Substance: LINEZOLID
     Indication: Septic shock
     Dosage: 1.2 GRAM
     Route: 041
     Dates: start: 20220505, end: 20220513
  2. AMIKACIN [Suspect]
     Active Substance: AMIKACIN
     Indication: Septic shock
     Dosage: 1740 MILLIGRAM
     Route: 041
     Dates: start: 20220506, end: 20220507
  3. CEFEPIME [Suspect]
     Active Substance: CEFEPIME HYDROCHLORIDE
     Indication: Septic shock
     Dosage: 6 GRAM
     Route: 041
     Dates: start: 20220505, end: 20220513
  4. CASPOFUNGIN ACETATE [Suspect]
     Active Substance: CASPOFUNGIN ACETATE
     Indication: Septic shock
     Dosage: 50 MILLIGRAM
     Route: 041
     Dates: start: 20220505, end: 20220508
  5. IOMERON [Suspect]
     Active Substance: IOMEPROL
     Indication: Computerised tomogram
     Dosage: 70 MILLILITER
     Route: 042
     Dates: start: 20220506, end: 20220506
  6. METRONIDAZOLE [Suspect]
     Active Substance: METRONIDAZOLE
     Indication: Septic shock
     Dosage: 1.5 GRAM
     Route: 041
     Dates: start: 20220505, end: 20220508
  7. NOREPINEPHRINE [Suspect]
     Active Substance: NOREPINEPHRINE
     Indication: Septic shock
     Dosage: 4 MILLIGRAM
     Route: 041
     Dates: start: 20220506, end: 20220507
  8. PROPOFOL LIPURO [Suspect]
     Active Substance: PROPOFOL
     Indication: Septic shock
     Dosage: 1200 MILLIGRAM
     Route: 041
     Dates: start: 20220506, end: 20220507
  9. PIPERACILLIN SODIUM\TAZOBACTAM SODIUM [Suspect]
     Active Substance: PIPERACILLIN SODIUM\TAZOBACTAM SODIUM
     Indication: Febrile bone marrow aplasia
     Dosage: NON PR?CIS?E
     Route: 041
     Dates: start: 20220423, end: 20220425

REACTIONS (1)
  - Rash maculo-papular [Recovered/Resolved]

NARRATIVE: CASE EVENT DATE: 20220508
